FAERS Safety Report 13919347 (Version 3)
Quarter: 2017Q4

REPORT INFORMATION
  Report Type: Report from Study
  Country: CA (occurrence: CA)
  Receive Date: 20170830
  Receipt Date: 20171027
  Transmission Date: 20180320
  Serious: Yes (Disabling)
  Sender: FDA-Public Use
  Company Number: CA-AMGEN-CANSL2017106954

PATIENT
  Age: 55 Year
  Sex: Male
  Weight: 125 kg

DRUGS (6)
  1. DECADRON [Suspect]
     Active Substance: DEXAMETHASONE
     Indication: PRODUCT USED FOR UNKNOWN INDICATION
     Dosage: UNK
     Route: 065
  2. KYPROLIS [Suspect]
     Active Substance: CARFILZOMIB
     Dosage: 123 MG, DAY 1,2,8,9,15,16
     Route: 042
     Dates: start: 2017
  3. KYPROLIS [Suspect]
     Active Substance: CARFILZOMIB
     Dosage: 123 MG, DAY 1,2,8,9,15,16
     Route: 042
     Dates: start: 2017, end: 2017
  4. KYPROLIS [Suspect]
     Active Substance: CARFILZOMIB
     Dosage: 123 MG, DAY 1,2,8,9,15,16
     Route: 042
     Dates: start: 2017, end: 2017
  5. KYPROLIS [Suspect]
     Active Substance: CARFILZOMIB
     Indication: PLASMA CELL MYELOMA
     Dosage: 123 MG, DAY 1,2,8,9,15,16
     Route: 042
     Dates: start: 20170412, end: 2017
  6. KYPROLIS [Suspect]
     Active Substance: CARFILZOMIB
     Dosage: 123 MG, DAY 1,2,8,9,15,16
     Route: 042
     Dates: start: 2017, end: 2017

REACTIONS (7)
  - Pain in extremity [Not Recovered/Not Resolved]
  - Somnolence [Not Recovered/Not Resolved]
  - Appetite disorder [Recovered/Resolved with Sequelae]
  - Dyspnoea [Not Recovered/Not Resolved]
  - Insomnia [Recovering/Resolving]
  - Fatigue [Not Recovered/Not Resolved]
  - Malaise [Not Recovered/Not Resolved]

NARRATIVE: CASE EVENT DATE: 2017
